FAERS Safety Report 4497930-1 (Version None)
Quarter: 2004Q4

REPORT INFORMATION
  Report Type: 
  Country: None (occurrence: None)
  Receive Date: 20041105
  Receipt Date: 20041029
  Transmission Date: 20050328
  Serious: Yes (Other)
  Sender: FDA-Public Use
  Company Number: 2004UW20314

PATIENT
  Age: 64 Year
  Sex: Female
  Weight: 88.4514 kg

DRUGS (8)
  1. NOLVADEX [Suspect]
     Indication: BREAST CANCER
     Dosage: 20 MG PO
     Route: 048
     Dates: start: 20000601
  2. NOLVADEX [Suspect]
     Indication: BREAST CANCER
     Dosage: 10 MG BID PO
     Route: 048
  3. NOLVADEX [Suspect]
     Indication: BREAST CANCER
     Dosage: 20 MG BID PO
     Route: 048
  4. TAMOXIFEN CITRATE [Suspect]
     Indication: BREAST CANCER
     Dosage: 10 MG BID PO
     Route: 048
  5. TAMOXIFEN ^BARR^ [Suspect]
     Indication: BREAST CANCER
     Dosage: 20 MG BID PO
     Route: 048
  6. TAMOXIFEN ^MYLAN^ [Suspect]
     Indication: BREAST CANCER
     Dosage: 10 MG BID PO
     Route: 048
     Dates: start: 20030602
  7. TAMOXIFEN ^MYLAN^ [Suspect]
     Indication: BREAST CANCER
     Dosage: 20 MG BID PO
     Route: 048
  8. SINGULAIR [Concomitant]

REACTIONS (15)
  - ALOPECIA [None]
  - ARTHRALGIA [None]
  - DISTURBANCE IN ATTENTION [None]
  - EMOTIONAL DISORDER [None]
  - GASTROOESOPHAGEAL REFLUX DISEASE [None]
  - HEPATIC ENZYME INCREASED [None]
  - HOT FLUSH [None]
  - INSOMNIA [None]
  - LIVER DISORDER [None]
  - MEDICATION ERROR [None]
  - PAIN [None]
  - PNEUMONIA [None]
  - RETINOSCHISIS [None]
  - VITREOUS DETACHMENT [None]
  - WEIGHT INCREASED [None]
